FAERS Safety Report 9477510 (Version 1)
Quarter: 2013Q3

REPORT INFORMATION
  Report Type: Spontaneous
  Country: FR (occurrence: FR)
  Receive Date: 20130827
  Receipt Date: 20130827
  Transmission Date: 20140515
  Serious: Yes (Other)
  Sender: FDA-Public Use
  Company Number: FR-ROCHE-1265401

PATIENT
  Age: 65 Year
  Sex: Male

DRUGS (3)
  1. CELLCEPT [Suspect]
     Indication: PRODUCT USED FOR UNKNOWN INDICATION
     Route: 048
     Dates: start: 20080417
  2. CICLOSPORINE [Interacting]
     Indication: PRODUCT USED FOR UNKNOWN INDICATION
     Route: 048
     Dates: start: 20080417
  3. MENVEO (FRANCE) [Interacting]
     Indication: MENINGITIS MENINGOCOCCAL
     Route: 058
     Dates: start: 20110929

REACTIONS (2)
  - Drug ineffective [Unknown]
  - Drug interaction [Unknown]
